FAERS Safety Report 9894868 (Version 5)
Quarter: 2014Q2

REPORT INFORMATION
  Report Type: Spontaneous
  Country: BR (occurrence: BR)
  Receive Date: 20140213
  Receipt Date: 20140408
  Transmission Date: 20141212
  Serious: Yes (Other)
  Sender: FDA-Public Use
  Company Number: BR-PFIZER INC-2014036982

PATIENT
  Sex: Female

DRUGS (7)
  1. PRISTIQ [Suspect]
     Indication: MENOPAUSE
     Dosage: 100 MG, UNK
     Route: 048
     Dates: start: 201204
  2. PRISTIQ [Suspect]
     Dosage: UNK, ALTERNATE DAY
     Route: 048
  3. PRISTIQ [Suspect]
     Dosage: ONE TABLET OF MEDICINE WITHOUT ALTERNATING THE DAYS
     Route: 048
  4. GLIFAGE XR [Concomitant]
     Dosage: UNK
  5. VYTORIN [Concomitant]
     Dosage: UNK
  6. OSCAL D [Concomitant]
     Dosage: UNK
  7. NATRILIX - SLOW RELEASE [Concomitant]
     Dosage: UNK

REACTIONS (15)
  - Dependence [Unknown]
  - Weight increased [Unknown]
  - Malaise [Unknown]
  - Dizziness [Unknown]
  - Lethargy [Unknown]
  - Nausea [Unknown]
  - Withdrawal syndrome [Not Recovered/Not Resolved]
  - Labyrinthitis [Unknown]
  - Vision blurred [Unknown]
  - Retching [Unknown]
  - Cold sweat [Unknown]
  - Gait disturbance [Unknown]
  - Activities of daily living impaired [Not Recovered/Not Resolved]
  - Hyperhidrosis [Unknown]
  - Visual impairment [Unknown]
